FAERS Safety Report 4431828-X (Version None)
Quarter: 2004Q3

REPORT INFORMATION
  Report Type: 
  Country: None (occurrence: None)
  Receive Date: 20040818
  Receipt Date: 20040728
  Transmission Date: 20050211
  Serious: Yes (Hospitalization)
  Sender: FDA-Public Use
  Company Number: US_0408104631

PATIENT
  Sex: Female

DRUGS (2)
  1. FORTEO [Suspect]
  2. CALCIUM CARBONATE [Concomitant]

REACTIONS (5)
  - BIPOLAR DISORDER [None]
  - CREATININE RENAL CLEARANCE DECREASED [None]
  - HYPERCALCAEMIA [None]
  - MANIA [None]
  - RENAL FUNCTION TEST ABNORMAL [None]
